FAERS Safety Report 5579035-1 (Version None)
Quarter: 2007Q4

REPORT INFORMATION
  Report Type: 
  Country: None (occurrence: None)
  Receive Date: 20071228
  Receipt Date: 20071217
  Transmission Date: 20080405
  Serious: Yes (Hospitalization)
  Sender: FDA-Public Use
  Company Number: TPA2007A02519

PATIENT
  Age: 73 Year
  Sex: Female
  Weight: 87.5442 kg

DRUGS (4)
  1. ROZEREM [Suspect]
     Indication: INSOMNIA
     Dosage: 8 MG, QHS, PER ORAL
     Route: 048
     Dates: start: 20071101, end: 20071101
  2. LEXAPRO [Concomitant]
  3. BUSPAR [Concomitant]
  4. XANAX [Concomitant]

REACTIONS (6)
  - ARTHRALGIA [None]
  - CONDITION AGGRAVATED [None]
  - DRUG INEFFECTIVE [None]
  - INSOMNIA [None]
  - OESOPHAGITIS [None]
  - PAIN IN EXTREMITY [None]
